FAERS Safety Report 6033311-7 (Version None)
Quarter: 2009Q1

REPORT INFORMATION
  Report Type: 
  Country: None (occurrence: None)
  Receive Date: 20090109
  Receipt Date: 20090105
  Transmission Date: 20090719
  Serious: Yes (Death)
  Sender: FDA-Public Use
  Company Number: US-ELI_LILLY_AND_COMPANY-US200901000340

PATIENT
  Age: 74 Year
  Sex: Male

DRUGS (2)
  1. XIGRIS [Suspect]
     Dates: start: 20081218, end: 20081222
  2. OXYGEN [Concomitant]
     Dates: end: 20081222

REACTIONS (1)
  - DEATH [None]
